FAERS Safety Report 4578370-3 (Version None)
Quarter: 2005Q1

REPORT INFORMATION
  Report Type: 
  Country: None (occurrence: None)
  Receive Date: 20050202
  Receipt Date: 20050202
  Transmission Date: 20050727
  Serious: Yes (Death, Hospitalization)
  Sender: FDA-Public Use
  Company Number: None

PATIENT
  Age: 79 Year
  Sex: Female
  Weight: 63 kg

DRUGS (6)
  1. CIPROFLOXACIN HCL [Suspect]
     Indication: PNEUMONIA
  2. CIPROFLOXACIN HCL [Suspect]
     Indication: URINARY TRACT INFECTION
  3. NITROFURANTOIN [Suspect]
     Indication: URINARY TRACT INFECTION
  4. LISINOPRIL [Concomitant]
  5. LOPRESSOR [Concomitant]
  6. CARDIZEM [Concomitant]

REACTIONS (1)
  - TOXIC EPIDERMAL NECROLYSIS [None]
